FAERS Safety Report 17540854 (Version 1)
Quarter: 2020Q1

REPORT INFORMATION
  Report Type: Spontaneous
  Country: US (occurrence: US)
  Receive Date: 20200313
  Receipt Date: 20200313
  Transmission Date: 20200409
  Serious: No
  Sender: FDA-Public Use
  Company Number: US-TARO-2019TAR00710

PATIENT
  Age: 38 Year
  Sex: Male
  Weight: 97.51 kg

DRUGS (2)
  1. LAMOTRIGINE TABLETS 200 MG [Suspect]
     Active Substance: LAMOTRIGINE
     Dosage: 400 MG, 1X/DAY
     Route: 048
     Dates: start: 20191012
  2. LAMOTRIGINE TABLETS 200 MG [Suspect]
     Active Substance: LAMOTRIGINE
     Indication: BIPOLAR DISORDER
     Dosage: 200 MG, 1X/DAY
     Route: 048
     Dates: start: 201908, end: 20191011

REACTIONS (6)
  - Headache [Recovered/Resolved]
  - Incorrect dose administered [Not Recovered/Not Resolved]
  - Unevaluable event [Recovered/Resolved]
  - Product quality issue [Recovered/Resolved]
  - Intentional overdose [Not Recovered/Not Resolved]
  - Drug ineffective [Recovered/Resolved]

NARRATIVE: CASE EVENT DATE: 20191010
